FAERS Safety Report 25474445 (Version 2)
Quarter: 2025Q3

REPORT INFORMATION
  Report Type: Spontaneous
  Country: US (occurrence: US)
  Receive Date: 20250624
  Receipt Date: 20250701
  Transmission Date: 20251021
  Serious: No
  Sender: BAUSCH AND LOMB
  Company Number: US-BAUSCHBL-2025BNL011135

PATIENT
  Age: 69 Year
  Sex: Female

DRUGS (1)
  1. XIIDRA [Suspect]
     Active Substance: LIFITEGRAST
     Indication: Dry eye
     Route: 065
     Dates: start: 20250617

REACTIONS (8)
  - Vision blurred [Unknown]
  - Impaired quality of life [Unknown]
  - Visual impairment [Not Recovered/Not Resolved]
  - Product use complaint [Unknown]
  - Product packaging quantity issue [Unknown]
  - Product complaint [Unknown]
  - Inappropriate schedule of product administration [Unknown]
  - Patient dissatisfaction with treatment [Unknown]

NARRATIVE: CASE EVENT DATE: 20250601
